FAERS Safety Report 23307561 (Version 1)
Quarter: 2023Q4

REPORT INFORMATION
  Report Type: Spontaneous
  Country: US (occurrence: None)
  Receive Date: 20231215
  Receipt Date: 20231215
  Transmission Date: 20240110
  Serious: Yes (Life-Threatening, Hospitalization)
  Sender: FDA-Public Use
  Company Number: None

PATIENT
  Age: 56 Year
  Sex: Male
  Weight: 75 kg

DRUGS (3)
  1. CAPECITABINE [Suspect]
     Active Substance: CAPECITABINE
     Indication: Colon cancer stage II
     Dosage: OTHER FREQUENCY : BID AND Q21 DAYS;?OTHER ROUTE : PO AND IV;?
     Route: 050
     Dates: start: 20231102, end: 20231107
  2. OXALIPLATIN [Concomitant]
     Active Substance: OXALIPLATIN
     Dates: end: 20231126
  3. URIDINE TRIACETATE [Concomitant]
     Active Substance: URIDINE TRIACETATE

REACTIONS (3)
  - Rash [None]
  - Drug metabolising enzyme decreased [None]
  - Stevens-Johnson syndrome [None]

NARRATIVE: CASE EVENT DATE: 20231107
